FAERS Safety Report 11003911 (Version 1)
Quarter: 2015Q2

REPORT INFORMATION
  Report Type: Spontaneous
  Country: US (occurrence: None)
  Receive Date: 20150408
  Receipt Date: 20150408
  Transmission Date: 20150821
  Serious: Yes (Other)
  Sender: FDA-Public Use
  Company Number: None

PATIENT
  Age: 63 Year
  Sex: Male
  Weight: 79.38 kg

DRUGS (3)
  1. LIPITOR [Suspect]
     Active Substance: ATORVASTATIN CALCIUM
     Indication: BLOOD CHOLESTEROL INCREASED
  2. VIT. D [Concomitant]
  3. COSAMIN DS [Concomitant]

REACTIONS (2)
  - Amnesia [None]
  - Cerebral vasoconstriction [None]

NARRATIVE: CASE EVENT DATE: 20150406
